FAERS Safety Report 15310410 (Version 1)
Quarter: 2018Q3

REPORT INFORMATION
  Report Type: Spontaneous
  Country: US (occurrence: US)
  Receive Date: 20180813
  Receipt Date: 20180813
  Transmission Date: 20181010
  Serious: No
  Sender: FDA-Public Use
  Company Number: None

PATIENT
  Age: 31 Year
  Sex: Male

DRUGS (1)
  1. STRIBILD [Suspect]
     Active Substance: COBICISTAT\ELVITEGRAVIR\EMTRICITABINE\TENOFOVIR DISOPROXIL FUMARATE
     Indication: HIV INFECTION

REACTIONS (7)
  - Inability to afford medication [None]
  - Headache [None]
  - Drug dose omission [None]
  - Nausea [None]
  - Vomiting [None]
  - Insurance issue [None]
  - Abdominal discomfort [None]

NARRATIVE: CASE EVENT DATE: 20180810
